FAERS Safety Report 22053260 (Version 1)
Quarter: 2023Q1

REPORT INFORMATION
  Report Type: Spontaneous
  Country: US (occurrence: US)
  Receive Date: 20230302
  Receipt Date: 20230302
  Transmission Date: 20230418
  Serious: Yes (Hospitalization)
  Sender: FDA-Public Use
  Company Number: US-MYLANLABS-2023M1022120

PATIENT
  Age: 36 Year
  Sex: Female

DRUGS (2)
  1. TRIAMCINOLONE [Suspect]
     Active Substance: TRIAMCINOLONE
     Indication: Lichen planopilaris
     Dosage: 1 MILLIGRAM, 0.2 ML OF 5MG/ML SOLUTION (FIRST DOSE)
     Route: 026
  2. TRIAMCINOLONE [Suspect]
     Active Substance: TRIAMCINOLONE
     Dosage: 5MG/ML (SECOND DOSE)
     Route: 026

REACTIONS (2)
  - Basal cell carcinoma [Recovering/Resolving]
  - Unmasking of previously unidentified disease [Recovering/Resolving]
